FAERS Safety Report 23673528 (Version 1)
Quarter: 2024Q1

REPORT INFORMATION
  Report Type: Spontaneous
  Country: US (occurrence: US)
  Receive Date: 20240326
  Receipt Date: 20240326
  Transmission Date: 20240410
  Serious: No
  Sender: FDA-Public Use
  Company Number: US-PharmaLex US Corporation-2154815

PATIENT
  Age: 71 Year
  Sex: Female

DRUGS (1)
  1. CYTALUX [Suspect]
     Active Substance: PAFOLACIANINE SODIUM
     Indication: Neoplasm malignant
     Route: 042
     Dates: start: 20240103

REACTIONS (2)
  - Rhinorrhoea [Recovered/Resolved with Sequelae]
  - Oropharyngeal pain [Recovered/Resolved with Sequelae]

NARRATIVE: CASE EVENT DATE: 20240103
